FAERS Safety Report 5622403-X (Version None)
Quarter: 2008Q1

REPORT INFORMATION
  Report Type: 
  Country: None (occurrence: None)
  Receive Date: 20080211
  Receipt Date: 20080201
  Transmission Date: 20080703
  Serious: Yes (Other)
  Sender: FDA-Public Use
  Company Number: FR-ABBOTT-08P-056-0436799-00

PATIENT
  Age: 35 Year
  Sex: Female

DRUGS (2)
  1. VALPROATE DE SODIUM WINTHROP LP [Suspect]
     Indication: EPILEPSY
     Route: 048
     Dates: start: 20080101
  2. VALPROATE DE SODIUM WINTHROP LP [Suspect]
     Dosage: DEPAKINE CHRONO
     Dates: end: 20080101

REACTIONS (2)
  - EPILEPSY [None]
  - THERAPEUTIC RESPONSE UNEXPECTED WITH DRUG SUBSTITUTION [None]
